FAERS Safety Report 15732778 (Version 1)
Quarter: 2018Q4

REPORT INFORMATION
  Report Type: Spontaneous
  Country: US (occurrence: US)
  Receive Date: 20181217
  Receipt Date: 20181217
  Transmission Date: 20190205
  Serious: No
  Sender: FDA-Public Use
  Company Number: US-009507513-1811USA011691

PATIENT
  Sex: Female

DRUGS (1)
  1. NEXPLANON [Suspect]
     Active Substance: ETONOGESTREL
     Dosage: IMPLANT, ARM (UNSPECIFIED)
     Route: 059

REACTIONS (3)
  - Implant site swelling [Not Recovered/Not Resolved]
  - Inappropriate schedule of product administration [Unknown]
  - Nerve compression [Not Recovered/Not Resolved]
